FAERS Safety Report 12970181 (Version 2)
Quarter: 2016Q4

REPORT INFORMATION
  Report Type: Spontaneous
  Country: JP (occurrence: JP)
  Receive Date: 20161123
  Receipt Date: 20161227
  Transmission Date: 20170207
  Serious: Yes (Hospitalization)
  Sender: FDA-Public Use
  Company Number: JP-JNJFOC-20161122870

PATIENT
  Age: 15 Year
  Sex: Female

DRUGS (1)
  1. TOPINA [Suspect]
     Active Substance: TOPIRAMATE
     Indication: PRODUCT USED FOR UNKNOWN INDICATION
     Route: 048

REACTIONS (2)
  - Hypercalciuria [Not Recovered/Not Resolved]
  - Respiratory tract infection [Recovered/Resolved]
